FAERS Safety Report 23699560 (Version 1)
Quarter: 2024Q2

REPORT INFORMATION
  Report Type: Spontaneous
  Country: US (occurrence: US)
  Receive Date: 20240402
  Receipt Date: 20240402
  Transmission Date: 20240715
  Serious: No
  Sender: FDA-Public Use
  Company Number: US-SA-SAC20240402000084

PATIENT
  Age: 81 Year
  Sex: Female
  Weight: 83 kg

DRUGS (10)
  1. DUPIXENT [Suspect]
     Active Substance: DUPILUMAB
     Indication: Dermatitis atopic
     Dosage: 300 MG,  FREQUENCY: OTHER
     Route: 058
     Dates: start: 20231102
  2. BUMETANIDE [Concomitant]
     Active Substance: BUMETANIDE
  3. CARVEDILOL [Concomitant]
     Active Substance: CARVEDILOL
  4. CLOBETASOL [Concomitant]
     Active Substance: CLOBETASOL
  5. DOXAZOSIN [Concomitant]
     Active Substance: DOXAZOSIN MESYLATE
  6. FOLIC ACID [Concomitant]
     Active Substance: FOLIC ACID
  7. LEFLUNOMIDE [Concomitant]
     Active Substance: LEFLUNOMIDE
  8. METHOTREXATE [Concomitant]
     Active Substance: METHOTREXATE
  9. OLMESARTAN [Concomitant]
     Active Substance: OLMESARTAN
  10. PREDNISONE [Concomitant]
     Active Substance: PREDNISONE

REACTIONS (1)
  - Dry eye [Unknown]
